FAERS Safety Report 7515800-9 (Version None)
Quarter: 2011Q2

REPORT INFORMATION
  Report Type: 
  Country: None (occurrence: None)
  Receive Date: 20110601
  Receipt Date: 20110519
  Transmission Date: 20111010
  Serious: Yes (Other)
  Sender: FDA-Public Use
  Company Number: US-PFIZER INC-2011108706

PATIENT
  Sex: Female
  Weight: 83.9 kg

DRUGS (3)
  1. ADVIL LIQUI-GELS [Suspect]
     Indication: ARTHRALGIA
     Dosage: UNK
     Dates: start: 20030101
  2. IBUPROFEN [Suspect]
     Indication: ARTHRALGIA
     Dosage: UNK
     Dates: start: 20110101, end: 20110101
  3. LEVOTHYROXINE [Concomitant]
     Indication: THYROID DISORDER
     Dosage: 100 MCG, 1X/DAY

REACTIONS (3)
  - DRUG INEFFECTIVE [None]
  - FEELING ABNORMAL [None]
  - ANAEMIA [None]
